FAERS Safety Report 25372869 (Version 1)
Quarter: 2025Q2

REPORT INFORMATION
  Report Type: Spontaneous
  Country: PT (occurrence: PT)
  Receive Date: 20250529
  Receipt Date: 20250529
  Transmission Date: 20250716
  Serious: Yes (Other)
  Sender: AUROBINDO
  Company Number: PT-LABVITORIA-2025-00131

PATIENT
  Age: 52 Year
  Sex: Male

DRUGS (3)
  1. DEFLAZACORT [Suspect]
     Active Substance: DEFLAZACORT
     Indication: Angioedema
     Route: 065
  2. BILASTINE [Concomitant]
     Active Substance: BILASTINE
     Indication: Angioedema
     Dosage: 30 MILLIGRAM, EVERY OTHER DAY
     Route: 065
  3. MIRTAZAPINE [Concomitant]
     Active Substance: MIRTAZAPINE
     Indication: Angioedema
     Dosage: 15 MILLIGRAM, ONCE A DAY
     Route: 065

REACTIONS (1)
  - Osteoporosis [Unknown]
